FAERS Safety Report 8902597 (Version 3)
Quarter: 2013Q2

REPORT INFORMATION
  Report Type: Spontaneous
  Country: FR (occurrence: FR)
  Receive Date: 20121112
  Receipt Date: 20130625
  Transmission Date: 20140414
  Serious: Yes (Life-Threatening, Other)
  Sender: FDA-Public Use
  Company Number: FR-009507513-1207FRA007068

PATIENT
  Age: 29 Year
  Sex: Female

DRUGS (11)
  1. ESMERON [Suspect]
     Indication: INDUCTION OF ANAESTHESIA
     Dosage: 100 MG,ONCE
     Route: 042
     Dates: start: 20120522, end: 20120522
  2. ESMERON [Suspect]
     Indication: GASTRECTOMY
     Dosage: 80 MG, ONCE
     Route: 042
     Dates: start: 20121024, end: 20121024
  3. RELAXIN (SUXAMETHONIUM CHLORIDE) [Suspect]
     Indication: INDUCTION OF ANAESTHESIA
     Dosage: 150 MG, ONCE
     Route: 042
     Dates: start: 20120522, end: 20120522
  4. RELAXIN (SUXAMETHONIUM CHLORIDE) [Suspect]
     Indication: GASTRECTOMY
  5. SUFENTANIL [Suspect]
     Indication: INDUCTION OF ANAESTHESIA
     Dosage: 20 MICROGRAM, ONCE
     Route: 042
     Dates: start: 20120522, end: 20120522
  6. SUFENTANIL [Suspect]
     Indication: GASTRECTOMY
     Dosage: 40 MICROGRAM, ONCE
     Route: 042
     Dates: start: 20121024, end: 20121024
  7. PROPOFOL LIPURO [Suspect]
     Indication: INDUCTION OF ANAESTHESIA
     Dosage: 300 MG, ONCE
     Route: 042
     Dates: start: 20120522, end: 20120522
  8. PROPOFOL LIPURO [Suspect]
     Indication: GASTRECTOMY
     Dosage: 250 MG, ONCE
     Route: 042
     Dates: start: 20121024, end: 20121024
  9. CEFAZOLINE PANPHARMA [Suspect]
     Indication: ANTIBIOTIC PROPHYLAXIS
     Dosage: 4 G, ONCE
     Route: 042
     Dates: start: 20120522, end: 20120522
  10. CEFOXITIN PANPHARMA [Suspect]
     Indication: ANTIBIOTIC PROPHYLAXIS
     Dosage: 4 G, ONCE
     Route: 042
     Dates: start: 20121024, end: 20121024
  11. VOLUVEN [Suspect]
     Indication: PRODUCT USED FOR UNKNOWN INDICATION
     Dosage: 500 ML, UNK
     Route: 042
     Dates: start: 20121024, end: 20121024

REACTIONS (5)
  - Respiratory disorder [Recovered/Resolved]
  - Anaphylactic shock [Recovered/Resolved]
  - Bronchospasm [Recovered/Resolved]
  - Erythema [Recovered/Resolved]
  - Hypotension [Recovered/Resolved]
